FAERS Safety Report 15553808 (Version 3)
Quarter: 2019Q2

REPORT INFORMATION
  Report Type: Spontaneous
  Country: US (occurrence: US)
  Receive Date: 20181026
  Receipt Date: 20190424
  Transmission Date: 20190711
  Serious: No
  Sender: FDA-Public Use
  Company Number: US-SA-2018SA295043

PATIENT
  Age: 41 Year
  Sex: Female
  Weight: 74.6 kg

DRUGS (2)
  1. CEREZYME [Suspect]
     Active Substance: IMIGLUCERASE
     Dosage: 4800 U, QOW
     Route: 041
     Dates: start: 20151014
  2. CEREZYME [Suspect]
     Active Substance: IMIGLUCERASE
     Indication: GAUCHER^S DISEASE
     Dosage: 60 UNIT/KG; QOW
     Route: 041
     Dates: start: 20110408

REACTIONS (1)
  - Exposure during pregnancy [Unknown]
